FAERS Safety Report 4569459-3 (Version None)
Quarter: 2005Q1

REPORT INFORMATION
  Report Type: 
  Country: None (occurrence: None)
  Receive Date: 20050201
  Receipt Date: 20050120
  Transmission Date: 20050727
  Serious: Yes (Hospitalization)
  Sender: FDA-Public Use
  Company Number: 174774

PATIENT
  Age: 54 Year
  Sex: Female
  Weight: 110.2241 kg

DRUGS (14)
  1. AVONEX [Suspect]
     Indication: MULTIPLE SCLEROSIS
     Dosage: 30 UG;QW; IM
     Route: 030
  2. PAXIL [Concomitant]
  3. ELAVIL [Concomitant]
  4. CLARINEX [Concomitant]
  5. NEXIUM [Concomitant]
  6. NEURONTIN [Concomitant]
  7. ULTRAM [Concomitant]
  8. FLEXERIL [Concomitant]
  9. PROVIGIL [Concomitant]
  10. COUMADIN [Concomitant]
  11. SINGULARIR [Concomitant]
  12. HYZAAR [Concomitant]
  13. BACLOFEN [Concomitant]
  14. ULTRACET [Concomitant]

REACTIONS (8)
  - ANTIPHOSPHOLIPID ANTIBODIES POSITIVE [None]
  - ARTHRITIS [None]
  - CONDITION AGGRAVATED [None]
  - DEEP VEIN THROMBOSIS [None]
  - DYSPNOEA [None]
  - HYPERTENSION [None]
  - PULMONARY EMBOLISM [None]
  - THROMBOPHLEBITIS [None]
